FAERS Safety Report 8605203-8 (Version None)
Quarter: 2012Q3

REPORT INFORMATION
  Report Type: 
  Country: None (occurrence: None)
  Receive Date: 20120820
  Receipt Date: 20120815
  Transmission Date: 20120928
  Serious: Yes (Hospitalization)
  Sender: FDA-Public Use
  Company Number: DE-ELI_LILLY_AND_COMPANY-DE201201002402

PATIENT
  Age: 73 Year
  Sex: Female

DRUGS (6)
  1. CALCIUM [Concomitant]
  2. VITAMIN D [Concomitant]
  3. FORTEO [Suspect]
     Indication: OSTEOPOROSIS
     Dosage: UNK, QD
     Route: 058
     Dates: start: 20110127, end: 20111201
  4. CARDIAC THERAPY [Concomitant]
  5. FORTEO [Suspect]
     Dosage: UNK
     Dates: end: 20120517
  6. GREEN LIPPED MUSSEL [Concomitant]

REACTIONS (3)
  - FLUID RETENTION [None]
  - WEIGHT DECREASED [None]
  - DYSPNOEA [None]
